FAERS Safety Report 5655844-5 (Version None)
Quarter: 2008Q1

REPORT INFORMATION
  Report Type: 
  Country: None (occurrence: None)
  Receive Date: 20080307
  Receipt Date: 20080227
  Transmission Date: 20080703
  Serious: Yes (Other)
  Sender: FDA-Public Use
  Company Number: NO-PFIZER INC-2008008918

PATIENT
  Sex: Female

DRUGS (4)
  1. CHANTIX [Suspect]
     Route: 048
     Dates: start: 20070101, end: 20080103
  2. DIOVAN COMP [Concomitant]
     Indication: HYPERTENSION
     Route: 048
  3. SELO-ZOK [Concomitant]
     Dosage: DAILY DOSE:100MG
     Route: 048
  4. SIMVASTATIN [Concomitant]
     Dosage: DAILY DOSE:20MG
     Route: 048

REACTIONS (1)
  - DEPRESSION SUICIDAL [None]
